FAERS Safety Report 10518327 (Version 1)
Quarter: 2014Q4

REPORT INFORMATION
  Report Type: Spontaneous
  Country: KR (occurrence: KR)
  Receive Date: 20141015
  Receipt Date: 20141015
  Transmission Date: 20150528
  Serious: Yes (Hospitalization)
  Sender: FDA-Public Use
  Company Number: KR-ACCORD-026453

PATIENT
  Age: 48 Year
  Sex: Female

DRUGS (2)
  1. GIMERACIL\OTERACIL\TEGAFUR [Suspect]
     Active Substance: GIMERACIL\OTERACIL\TEGAFUR
     Indication: METASTATIC GASTRIC CANCER
     Dosage: FOR 14 DAYS, EVERY 3 WEEKS.?RECEIVED 16 CYCLES.
     Route: 048
  2. PACLITAXEL/PACLITAXEL LIPOSOME [Suspect]
     Active Substance: PACLITAXEL
     Indication: METASTATIC GASTRIC CANCER
     Dosage: RECEIVED 16 CYCLES.?FOR DAY 1, 8, EVERY 3 WEEKS.
     Route: 042

REACTIONS (1)
  - Wernicke^s encephalopathy [Recovered/Resolved]
